FAERS Safety Report 12894516 (Version 1)
Quarter: 2016Q4

REPORT INFORMATION
  Report Type: Report from Study
  Country: None (occurrence: CO)
  Receive Date: 20161028
  Receipt Date: 20161028
  Transmission Date: 20170207
  Serious: Yes (Other)
  Sender: FDA-Public Use
  Company Number: CO-ABBVIE-16K-036-1765536-00

PATIENT
  Age: 41 Year
  Sex: Male
  Weight: 72 kg

DRUGS (1)
  1. HUMIRA [Suspect]
     Active Substance: ADALIMUMAB
     Indication: ANKYLOSING SPONDYLITIS
     Route: 058
     Dates: start: 20110717, end: 20160719

REACTIONS (3)
  - Fall [Unknown]
  - Craniocerebral injury [Recovering/Resolving]
  - Chest X-ray abnormal [Unknown]

NARRATIVE: CASE EVENT DATE: 20161021
